FAERS Safety Report 15917657 (Version 2)
Quarter: 2019Q3

REPORT INFORMATION
  Report Type: Spontaneous
  Country: US (occurrence: US)
  Receive Date: 20190205
  Receipt Date: 20190708
  Transmission Date: 20191004
  Serious: Yes (Hospitalization, Disabling, Other)
  Sender: FDA-Public Use
  Company Number: US-009507513-1112USA01777

PATIENT
  Sex: Female
  Weight: 58.06 kg

DRUGS (5)
  1. CENTRUM SILVER [Concomitant]
     Active Substance: MINERALS\VITAMINS
     Dosage: 1 DF, QD
     Route: 048
  2. FOSAMAX [Suspect]
     Active Substance: ALENDRONATE SODIUM
     Indication: OSTEOPENIA
     Dosage: 70 MG, QW
     Route: 048
     Dates: start: 19980101, end: 20091223
  3. CALTRATE WITH VITAMIN D [Concomitant]
     Active Substance: CALCIUM CARBONATE\CHOLECALCIFEROL
     Dosage: 1200 MG, QD
     Route: 048
  4. ALENDRONATE SODIUM. [Suspect]
     Active Substance: ALENDRONATE SODIUM
     Indication: OSTEOPOROSIS
     Dosage: 70 MG, QW
     Route: 048
     Dates: start: 20080317, end: 200904
  5. FOSAMAX [Suspect]
     Active Substance: ALENDRONATE SODIUM
     Indication: OSTEOPOROSIS

REACTIONS (19)
  - Hand fracture [Unknown]
  - Gastritis [Recovered/Resolved]
  - Cataract [Unknown]
  - Low turnover osteopathy [Not Recovered/Not Resolved]
  - Macular degeneration [Unknown]
  - Haemorrhoids [Unknown]
  - Hand fracture [Unknown]
  - Diverticulum [Unknown]
  - Presyncope [Recovered/Resolved]
  - Joint dislocation [Unknown]
  - Hand fracture [Unknown]
  - Impaired healing [Unknown]
  - Arrhythmia [Unknown]
  - Fall [Recovered/Resolved]
  - Fall [Unknown]
  - Essential hypertension [Unknown]
  - Femur fracture [Recovered/Resolved]
  - Labyrinthitis [Unknown]
  - Orthostatic hypotension [Recovered/Resolved]

NARRATIVE: CASE EVENT DATE: 1998
